FAERS Safety Report 5532484-X (Version None)
Quarter: 2007Q4

REPORT INFORMATION
  Report Type: 
  Country: None (occurrence: None)
  Receive Date: 20071203
  Receipt Date: 20071129
  Transmission Date: 20080405
  Serious: Yes (Other)
  Sender: FDA-Public Use
  Company Number: US-ABBOTT-07P-163-0426598-00

PATIENT
  Sex: Female
  Weight: 118 kg

DRUGS (4)
  1. HUMIRA [Suspect]
     Indication: CROHN'S DISEASE
     Dosage: LOADING DOSE
     Route: 058
     Dates: start: 20070801, end: 20070801
  2. HUMIRA [Suspect]
     Dosage: LOADING DOSE
     Route: 058
     Dates: start: 20070801, end: 20070901
  3. HUMIRA [Suspect]
     Route: 058
     Dates: start: 20070901
  4. MESALAMINE [Concomitant]
     Indication: CROHN'S DISEASE
     Route: 048

REACTIONS (3)
  - DRUG INEFFECTIVE [None]
  - HAEMATOCHEZIA [None]
  - PYODERMA GANGRENOSUM [None]
